FAERS Safety Report 5291792-0 (Version None)
Quarter: 2007Q2

REPORT INFORMATION
  Report Type: 
  Country: None (occurrence: None)
  Receive Date: 20070410
  Receipt Date: 20070404
  Transmission Date: 20071010
  Serious: Yes (Other)
  Sender: FDA-Public Use
  Company Number: GB-AVENTIS-200713040GDDC

PATIENT
  Age: 77 Year
  Sex: Female

DRUGS (12)
  1. EUGLUCON [Suspect]
     Dosage: DOSE: UNK
     Route: 048
  2. TAMIFLU [Suspect]
     Route: 048
     Dates: start: 20070318, end: 20070322
  3. NORVASC [Suspect]
     Dosage: DOSE: UNK
     Route: 048
  4. DIOVAN [Suspect]
     Dosage: DOSE: UNK
     Route: 048
  5. HOKUNALIN [Suspect]
     Route: 061
  6. FAMOTIDINE [Suspect]
     Dosage: DOSE: UNK
     Route: 048
  7. THEO-DUR [Suspect]
     Dosage: DOSE: UNK
     Route: 048
  8. FLUTICASONE PROPIONATE [Suspect]
     Dosage: DOSE: UNK
     Route: 055
  9. ACTOS [Suspect]
     Dosage: DOSE: UNK
     Route: 048
  10. BROTIZOLAM [Suspect]
     Dosage: DOSE: UNK
     Route: 048
  11. PREDNISOLONE [Suspect]
     Dosage: DOSE: UNK
  12. LIPITOR [Suspect]
     Dosage: DOSE: UNK
     Route: 048

REACTIONS (1)
  - HALLUCINATION [None]
